FAERS Safety Report 6392630-5 (Version None)
Quarter: 2009Q4

REPORT INFORMATION
  Report Type: 
  Country: None (occurrence: None)
  Receive Date: 20091007
  Receipt Date: 20090710
  Transmission Date: 20100525
  Serious: No
  Sender: FDA-Public Use
  Company Number: US-ALLERGAN-0909717US

PATIENT
  Sex: Female

DRUGS (1)
  1. LATISSE [Suspect]
     Indication: GROWTH OF EYELASHES
     Dosage: UNK, QHS

REACTIONS (4)
  - EYE COMPLICATION ASSOCIATED WITH DEVICE [None]
  - EYE PRURITUS [None]
  - SKIN HYPERPIGMENTATION [None]
  - VISION BLURRED [None]
